FAERS Safety Report 11608086 (Version 2)
Quarter: 2015Q4

REPORT INFORMATION
  Report Type: Spontaneous
  Country: US (occurrence: US)
  Receive Date: 20151007
  Receipt Date: 20151223
  Transmission Date: 20160304
  Serious: No
  Sender: FDA-Public Use
  Company Number: US-009507513-1509USA014616

PATIENT
  Age: 8 Month
  Sex: Male
  Weight: 7.2 kg

DRUGS (5)
  1. LASIX [Suspect]
     Active Substance: FUROSEMIDE
     Indication: CONGESTIVE CARDIOMYOPATHY
  2. MILRINONE [Concomitant]
     Active Substance: MILRINONE
     Indication: CARDIAC FAILURE CONGESTIVE
     Dosage: UNK
     Route: 041
  3. MILRINONE [Concomitant]
     Active Substance: MILRINONE
     Indication: CONGESTIVE CARDIOMYOPATHY
  4. LASIX [Suspect]
     Active Substance: FUROSEMIDE
     Indication: CARDIAC FAILURE CONGESTIVE
     Dosage: UNK
  5. IRON (UNSPECIFIED) (+) VITAMINS (UNSPECIFIED) [Concomitant]
     Indication: IRON DEFICIENCY ANAEMIA
     Dosage: UNK

REACTIONS (1)
  - Calcium deficiency [Recovering/Resolving]
